FAERS Safety Report 5386311-4 (Version None)
Quarter: 2007Q3

REPORT INFORMATION
  Report Type: 
  Country: None (occurrence: None)
  Receive Date: 20070713
  Receipt Date: 20070704
  Transmission Date: 20080115
  Serious: Yes (Disabling)
  Sender: FDA-Public Use
  Company Number: DE-AVENTIS-200711747DE

PATIENT
  Age: 57 Year
  Sex: Female
  Weight: 74 kg

DRUGS (10)
  1. ARAVA [Suspect]
     Indication: RHEUMATOID ARTHRITIS
     Route: 048
     Dates: start: 20061012, end: 20070513
  2. ARAVA [Suspect]
     Dosage: DOSE: NOT REPORTED
     Route: 048
     Dates: start: 20070101
  3. PREDNISOLONE [Concomitant]
     Indication: RHEUMATOID ARTHRITIS
     Dosage: DOSE: 20 MG IN DECENDING DOSAGE
     Dates: start: 20060927, end: 20061001
  4. PREDNISOLONE [Concomitant]
     Dates: start: 20070201
  5. MTX                                /00113801/ [Concomitant]
     Indication: RHEUMATOID ARTHRITIS
     Route: 058
     Dates: start: 20070205, end: 20070625
  6. MTX                                /00113801/ [Concomitant]
     Route: 048
     Dates: start: 20070625
  7. IBUPROFEN [Concomitant]
     Dates: start: 20060601
  8. CITALOPRAM HYDROBROMIDE [Concomitant]
     Dates: start: 20050101
  9. ASPIRIN [Concomitant]
     Dates: start: 20060101
  10. OMEP [Concomitant]
     Dates: start: 20070601

REACTIONS (3)
  - HYPOTENSION [None]
  - NAUSEA [None]
  - VOMITING [None]
